FAERS Safety Report 4620836-1 (Version None)
Quarter: 2005Q1

REPORT INFORMATION
  Report Type: 
  Country: None (occurrence: None)
  Receive Date: 20050325
  Receipt Date: 20050318
  Transmission Date: 20050727
  Serious: Yes (Other)
  Sender: FDA-Public Use
  Company Number: CIP05000653

PATIENT
  Age: 64 Year
  Sex: Male

DRUGS (2)
  1. ACTONEL [Suspect]
     Indication: OSTEOPOROSIS
     Dosage: 5MG DAILY, ORAL
     Route: 048
     Dates: start: 20040901
  2. ACTONEL [Suspect]
     Indication: OSTEOPOROSIS
     Dosage: 35 MG ONCE WEEKLY, ORAL
     Route: 048

REACTIONS (3)
  - BONE DENSITY DECREASED [None]
  - DIZZINESS [None]
  - TOOTH ABSCESS [None]
